FAERS Safety Report 17480571 (Version 1)
Quarter: 2020Q1

REPORT INFORMATION
  Report Type: Report from Study
  Country: CO (occurrence: CO)
  Receive Date: 20200301
  Receipt Date: 20200301
  Transmission Date: 20200409
  Serious: Yes (Life-Threatening, Hospitalization)
  Sender: FDA-Public Use
  Company Number: NVSC2020CO047484

PATIENT
  Sex: Male

DRUGS (3)
  1. CHLOROTHIAZIDE. [Concomitant]
     Active Substance: CHLOROTHIAZIDE
     Indication: URINARY RETENTION
     Dosage: UNK
     Route: 048
  2. LOSARTAN. [Suspect]
     Active Substance: LOSARTAN
     Indication: HYPERTENSION
     Dosage: UNK, BID
     Route: 048
  3. REVOLADE [Suspect]
     Active Substance: ELTROMBOPAG
     Indication: IMMUNE THROMBOCYTOPENIC PURPURA
     Dosage: 50 MG, QD
     Route: 048
     Dates: start: 20200214

REACTIONS (5)
  - Chromaturia [Unknown]
  - Thrombocytopenia [Recovering/Resolving]
  - Hepatic cirrhosis [Unknown]
  - Hepatitis B [Unknown]
  - Inappropriate schedule of product administration [Unknown]
